FAERS Safety Report 25816935 (Version 1)
Quarter: 2025Q3

REPORT INFORMATION
  Report Type: Spontaneous
  Country: US (occurrence: None)
  Receive Date: 20250917
  Receipt Date: 20250917
  Transmission Date: 20251020
  Serious: No
  Sender: FDA-CTU
  Company Number: None

PATIENT
  Age: 84 Year
  Sex: Male

DRUGS (9)
  1. CAPECITABINE [Suspect]
     Active Substance: CAPECITABINE
     Indication: Rectal cancer
     Dosage: 300 MG BID ORAL
     Route: 048
     Dates: start: 20250822, end: 20250910
  2. CAPECITABINE [Suspect]
     Active Substance: CAPECITABINE
     Indication: Rectal cancer
     Dosage: 1500. MG BID ORAL
     Route: 048
     Dates: start: 20250822, end: 20250910
  3. VIAGRA  100mg labs [Concomitant]
  4. carbidopa/levodopa 10-100mg tabs [Concomitant]
  5. daily-vite tabs [Concomitant]
  6. emia cream [Concomitant]
  7. Mirtazapine 7.5 mg tabs [Concomitant]
  8. Vitamin B 12 2000mcg ER TABS [Concomitant]
  9. Vitamin D3 1000 units tab [Concomitant]

REACTIONS (1)
  - Gastrointestinal infection [None]

NARRATIVE: CASE EVENT DATE: 20250910
